FAERS Safety Report 25378206 (Version 1)
Quarter: 2025Q2

REPORT INFORMATION
  Report Type: Report from Study
  Country: BR (occurrence: BR)
  Receive Date: 20250530
  Receipt Date: 20250530
  Transmission Date: 20250717
  Serious: Yes (Hospitalization, Other)
  Sender: JOHNSON AND JOHNSON
  Company Number: BR-JNJFOC-20250534844

PATIENT
  Age: 15 Year
  Sex: Female
  Weight: 58 kg

DRUGS (1)
  1. INFLIXIMAB [Suspect]
     Active Substance: INFLIXIMAB
     Indication: Crohn^s disease
     Dates: start: 20230309

REACTIONS (4)
  - Hospitalisation [Recovered/Resolved]
  - Crohn^s disease [Unknown]
  - Anal abscess [Recovering/Resolving]
  - Drug ineffective [Unknown]

NARRATIVE: CASE EVENT DATE: 20250501
